FAERS Safety Report 4601542-6 (Version None)
Quarter: 2005Q1

REPORT INFORMATION
  Report Type: 
  Country: None (occurrence: None)
  Receive Date: 20050127
  Receipt Date: 20040901
  Transmission Date: 20050727
  Serious: Yes (Hospitalization)
  Sender: FDA-Public Use
  Company Number: 200416662US

PATIENT
  Sex: Male

DRUGS (2)
  1. AMARYL [Suspect]
     Dosage: 4 MG
  2. REMINYL [Suspect]
     Dosage: 4 MG

REACTIONS (1)
  - HYPOGLYCAEMIA [None]
